FAERS Safety Report 9057371 (Version 1)
Quarter: 2013Q1

REPORT INFORMATION
  Report Type: Spontaneous
  Country: IN (occurrence: IN)
  Receive Date: 20130204
  Receipt Date: 20130204
  Transmission Date: 20140127
  Serious: Yes (Hospitalization)
  Sender: FDA-Public Use
  Company Number: PHHY2013IN008425

PATIENT
  Age: 55 Year
  Sex: Female

DRUGS (13)
  1. ISONIAZID [Suspect]
     Indication: PULMONARY TUBERCULOSIS
     Dosage: 300 MG, UNK
  2. ISONIAZID [Suspect]
     Dosage: 50 MG, UNK
  3. ISONIAZID [Suspect]
     Dosage: 100 MG, UNK
  4. RIFAMPICIN [Concomitant]
     Indication: PULMONARY TUBERCULOSIS
     Dosage: 450 MG, UNK
  5. RIFAMPICIN [Concomitant]
     Dosage: 150 MG, UNK
  6. RIFAMPICIN [Concomitant]
     Dosage: 450 MG, UNK
  7. ALZIDE//PYRAZINAMIDE [Concomitant]
     Indication: PULMONARY TUBERCULOSIS
     Dosage: 750 MG, UNK
  8. ALZIDE//PYRAZINAMIDE [Concomitant]
     Dosage: 250 MG, UNK
  9. ALZIDE//PYRAZINAMIDE [Concomitant]
     Dosage: 1000 MG, UNK
  10. ETHAMBUTOL [Concomitant]
     Indication: PULMONARY TUBERCULOSIS
     Dosage: 800 MG, UNK
  11. ETHAMBUTOL [Concomitant]
     Dosage: 200 MG, UNK
  12. ETHAMBUTOL [Concomitant]
     Dosage: 800 MG, UNK
  13. PARACETAMOL [Concomitant]
     Indication: PULMONARY TUBERCULOSIS

REACTIONS (17)
  - Stevens-Johnson syndrome [Recovering/Resolving]
  - Toxic epidermal necrolysis [Recovering/Resolving]
  - Rash erythematous [Recovering/Resolving]
  - Blister [Recovering/Resolving]
  - Oral pain [Recovering/Resolving]
  - Skin exfoliation [Recovering/Resolving]
  - Mucosal erosion [Recovering/Resolving]
  - Conjunctivitis [Recovering/Resolving]
  - Nikolsky^s sign [Recovering/Resolving]
  - Scab [Recovering/Resolving]
  - Skin haemorrhage [Recovering/Resolving]
  - Tachycardia [Recovering/Resolving]
  - Anaemia [Recovering/Resolving]
  - Skin lesion [Recovering/Resolving]
  - Conjunctival oedema [Recovering/Resolving]
  - Conjunctival irritation [Recovering/Resolving]
  - Macule [Recovering/Resolving]
